FAERS Safety Report 7735050 (Version 5)
Quarter: 2016Q2

REPORT INFORMATION
  Report Type: Report from Study
  Country: BE (occurrence: BE)
  Receive Date: 20101223
  Receipt Date: 20160502
  Transmission Date: 20160815
  Serious: Yes (Other)
  Sender: FDA-Public Use
  Company Number: BE-JNJFOC-20101205492

PATIENT
  Age: 27 Year
  Sex: Female
  Weight: 56 kg

DRUGS (1)
  1. REMICADE [Suspect]
     Active Substance: INFLIXIMAB
     Indication: COLITIS ULCERATIVE
     Route: 042

REACTIONS (3)
  - Exposure during pregnancy [Recovered/Resolved]
  - Premature delivery [Recovered/Resolved]
  - Pre-eclampsia [Recovered/Resolved]

NARRATIVE: CASE EVENT DATE: 20110621
